FAERS Safety Report 13599296 (Version 1)
Quarter: 2017Q2

REPORT INFORMATION
  Report Type: Spontaneous
  Country: JP (occurrence: JP)
  Receive Date: 20170531
  Receipt Date: 20170531
  Transmission Date: 20170830
  Serious: Yes (Other)
  Sender: FDA-Public Use
  Company Number: JP-MALLINCKRODT-T201702246

PATIENT
  Age: 58 Year
  Sex: Male
  Weight: 57 kg

DRUGS (24)
  1. AMITIZA [Concomitant]
     Active Substance: LUBIPROSTONE
     Dosage: 48 ?G
     Route: 048
     Dates: end: 20141223
  2. FERROUS SULFATE. [Concomitant]
     Active Substance: FERROUS SULFATE
     Dosage: 210 MG
     Route: 048
     Dates: end: 20141223
  3. SOLETON [Concomitant]
     Active Substance: ZALTOPROFEN
     Indication: ANALGESIC THERAPY
     Dosage: 240 MG
     Route: 048
     Dates: start: 20140917, end: 20141006
  4. TS-1 [Concomitant]
     Active Substance: GIMERACIL\OTERACIL\TEGAFUR
     Dosage: 4 DF
     Route: 048
     Dates: start: 20141215, end: 20141218
  5. ELPLAT [Concomitant]
     Active Substance: OXALIPLATIN
     Dosage: 200 MG
     Route: 051
     Dates: start: 20141121, end: 20141121
  6. OXIFAST [Concomitant]
     Active Substance: OXYCODONE
     Dosage: 30 MG
     Route: 051
     Dates: start: 20140909, end: 20140910
  7. CALONAL [Concomitant]
     Active Substance: ACETAMINOPHEN
     Indication: ANALGESIC THERAPY
     Dosage: UNK
     Route: 048
     Dates: start: 20141019, end: 20141223
  8. ALOXI [Concomitant]
     Active Substance: PALONOSETRON HYDROCHLORIDE
     Dosage: 0.75 MG
     Route: 051
     Dates: start: 20141121, end: 20141121
  9. METHADONE [Suspect]
     Active Substance: METHADONE HYDROCHLORIDE
     Dosage: 5 MG (10 MG DAILY DOSE)
     Route: 048
     Dates: start: 20141003, end: 20141029
  10. METHADONE [Suspect]
     Active Substance: METHADONE HYDROCHLORIDE
     Dosage: 5 MG (10 MG DAILY DOSE)
     Route: 048
     Dates: start: 20141110, end: 20141223
  11. NEXIUM [Concomitant]
     Active Substance: ESOMEPRAZOLE MAGNESIUM
     Dosage: 20 MG
     Route: 048
     Dates: end: 20141223
  12. CYMBALTA [Concomitant]
     Active Substance: DULOXETINE HYDROCHLORIDE
     Indication: ANALGESIC THERAPY
     Dosage: 20 MG
     Route: 048
     Dates: end: 20141023
  13. OXINORM [Concomitant]
     Active Substance: OXYCODONE HYDROCHLORIDE
     Indication: ANALGESIC THERAPY
     Dosage: 10 MG, PRN
     Route: 048
     Dates: start: 20140911
  14. PROMAC [Concomitant]
     Active Substance: NITROFURANTOIN
     Dosage: 150 MG
     Route: 048
     Dates: start: 20140917, end: 20141006
  15. ZYPREXA [Concomitant]
     Active Substance: OLANZAPINE
     Dosage: 2.5 MG
     Route: 048
     Dates: start: 20141010, end: 20141223
  16. DEXART [Concomitant]
     Active Substance: DEXAMETHASONE SODIUM PHOSPHATE
     Dosage: 9.9 MG
     Route: 051
     Dates: start: 20141215, end: 20141215
  17. ELPLAT [Concomitant]
     Active Substance: OXALIPLATIN
     Dosage: 160 MG
     Route: 051
     Dates: start: 20141215, end: 20141215
  18. ROZEREM [Concomitant]
     Active Substance: RAMELTEON
     Dosage: 8 MG
     Route: 048
     Dates: start: 20141214, end: 20141223
  19. TS-1 [Concomitant]
     Active Substance: GIMERACIL\OTERACIL\TEGAFUR
     Dosage: 4 DF
     Route: 048
     Dates: start: 20141121, end: 20141204
  20. METHADONE [Suspect]
     Active Substance: METHADONE HYDROCHLORIDE
     Dosage: 5 MG (15 MG DAILY DOSE)
     Route: 048
     Dates: start: 20141107, end: 20141109
  21. DEXART [Concomitant]
     Active Substance: DEXAMETHASONE SODIUM PHOSPHATE
     Dosage: 9.9 MG
     Route: 051
     Dates: start: 20141121, end: 20141121
  22. METHADONE [Suspect]
     Active Substance: METHADONE HYDROCHLORIDE
     Indication: CANCER PAIN
     Dosage: 5 MG (15 MG DAILY DOSE)
     Route: 048
     Dates: start: 20140909, end: 20141002
  23. ROHYPNOL [Concomitant]
     Active Substance: FLUNITRAZEPAM
     Dosage: UNK
     Route: 048
     Dates: start: 20140917, end: 20141023
  24. ALOXI [Concomitant]
     Active Substance: PALONOSETRON HYDROCHLORIDE
     Dosage: 0.75 MG
     Route: 051
     Dates: start: 20141215, end: 20141215

REACTIONS (5)
  - Somnolence [Recovered/Resolved]
  - Oedema peripheral [Not Recovered/Not Resolved]
  - Haematemesis [Recovered/Resolved]
  - Blood potassium decreased [Recovered/Resolved]
  - Stomatitis [Recovering/Resolving]

NARRATIVE: CASE EVENT DATE: 20140925
